FAERS Safety Report 4570315-5 (Version None)
Quarter: 2005Q1

REPORT INFORMATION
  Report Type: 
  Country: None (occurrence: None)
  Receive Date: 20050204
  Receipt Date: 20050126
  Transmission Date: 20050727
  Serious: Yes (Hospitalization)
  Sender: FDA-Public Use
  Company Number: US-BRISTOL-MYERS SQUIBB COMPANY-12838645

PATIENT
  Age: 43 Year
  Sex: Female
  Weight: 96 kg

DRUGS (13)
  1. PACLITAXEL [Suspect]
     Dates: start: 20041216, end: 20041216
  2. NEULASTA [Suspect]
     Indication: CHEMOTHERAPY
     Route: 058
     Dates: start: 20041016, end: 20041217
  3. CIMETIDINE [Suspect]
     Dates: start: 20041216, end: 20041216
  4. SUMATRIPTAN [Concomitant]
  5. ESOMEPRAZOLE [Concomitant]
  6. MIRALAX [Concomitant]
  7. BISACODYL [Concomitant]
  8. APAP + OXYCODONE [Concomitant]
     Dates: start: 20041026
  9. ZOLPIDEM TARTRATE [Concomitant]
     Dates: start: 20041026
  10. WARFARIN SODIUM [Concomitant]
  11. ALPRAZOLAM (GEN) [Concomitant]
     Dates: start: 20041129
  12. DEXAMETHASONE [Concomitant]
  13. DIPHENHYDRAMINE HCL [Concomitant]

REACTIONS (5)
  - ACUTE RESPIRATORY DISTRESS SYNDROME [None]
  - CONSTIPATION [None]
  - LEUKOCYTOSIS [None]
  - NEUTROPHIL COUNT ABNORMAL [None]
  - PYREXIA [None]
